FAERS Safety Report 6871531-X (Version None)
Quarter: 2010Q3

REPORT INFORMATION
  Report Type: 
  Country: None (occurrence: None)
  Receive Date: 20100723
  Receipt Date: 20100712
  Transmission Date: 20110219
  Serious: Yes (Other)
  Sender: FDA-Public Use
  Company Number: PHHY2010VE43437

PATIENT
  Sex: Female

DRUGS (4)
  1. ZOMETA [Suspect]
     Indication: BONE DISORDER
     Dosage: ONCE A MONTH
     Dates: start: 20090201
  2. REVLIMID [Concomitant]
     Indication: MULTIPLE MYELOMA
     Dosage: ONCE A DAY
     Route: 048
     Dates: start: 20100701
  3. ANTIHYPERTENSIVE DRUGS [Concomitant]
     Indication: HYPERTENSION
  4. DIURETICS [Concomitant]
     Indication: HYPERTENSION

REACTIONS (1)
  - BONE MARROW TRANSPLANT [None]
